FAERS Safety Report 7127971-7 (Version None)
Quarter: 2010Q4

REPORT INFORMATION
  Report Type: 
  Country: None (occurrence: None)
  Receive Date: 20101130
  Receipt Date: 20101123
  Transmission Date: 20110411
  Serious: Yes (Other)
  Sender: FDA-Public Use
  Company Number: US-PFIZER INC-2010156331

PATIENT
  Sex: Female

DRUGS (1)
  1. LIPITOR [Suspect]
     Indication: BLOOD CHOLESTEROL INCREASED
     Dosage: UNK
     Route: 048
     Dates: start: 20090101

REACTIONS (5)
  - GASTROOESOPHAGEAL REFLUX DISEASE [None]
  - NERVE INJURY [None]
  - PAIN [None]
  - SPINAL OSTEOARTHRITIS [None]
  - THROAT IRRITATION [None]
